FAERS Safety Report 10195510 (Version 1)
Quarter: 2014Q2

REPORT INFORMATION
  Report Type: Spontaneous
  Country: IE (occurrence: IE)
  Receive Date: 20140526
  Receipt Date: 20140526
  Transmission Date: 20141212
  Serious: Yes (Hospitalization, Other)
  Sender: FDA-Public Use
  Company Number: IE-BRISTOL-MYERS SQUIBB COMPANY-20782587

PATIENT
  Age: 54 Year
  Sex: Female
  Weight: 70 kg

DRUGS (2)
  1. ADCORTYL INJ [Suspect]
     Indication: PERIARTHRITIS
     Dosage: 1DF: 2 SEPARATE INJECTION
     Route: 014
     Dates: start: 20130323
  2. LIGNOCAINE [Suspect]
     Indication: PERIARTHRITIS
     Dates: start: 20140323

REACTIONS (2)
  - Postural orthostatic tachycardia syndrome [Recovered/Resolved]
  - Malaise [Recovered/Resolved]
